FAERS Safety Report 4383413-6 (Version None)
Quarter: 2004Q2

REPORT INFORMATION
  Report Type: 
  Country: None (occurrence: None)
  Receive Date: 20040623
  Receipt Date: 20040608
  Transmission Date: 20050107
  Serious: Yes (Hospitalization)
  Sender: FDA-Public Use
  Company Number: JP-ROCHE-370137

PATIENT
  Age: 81 Year
  Sex: Female

DRUGS (7)
  1. TORSEMIDE [Suspect]
     Indication: DRUG USE FOR UNKNOWN INDICATION
     Route: 048
     Dates: end: 20040424
  2. NORVASC [Concomitant]
     Dates: end: 20040424
  3. ASPIRIN [Concomitant]
     Dates: end: 20040424
  4. ACINON [Concomitant]
     Dates: end: 20040424
  5. ALMARL [Concomitant]
     Dates: end: 20040424
  6. LAC B [Concomitant]
     Dates: end: 20040424
  7. TANNALBIN [Concomitant]
     Dates: end: 20040424

REACTIONS (6)
  - DEPRESSED LEVEL OF CONSCIOUSNESS [None]
  - DYSPHAGIA [None]
  - HYPOAESTHESIA [None]
  - HYPOKALAEMIA [None]
  - METABOLIC ACIDOSIS [None]
  - RESPIRATORY FAILURE [None]
